FAERS Safety Report 6065064-0 (Version None)
Quarter: 2009Q1

REPORT INFORMATION
  Report Type: 
  Country: None (occurrence: None)
  Receive Date: 20090204
  Receipt Date: 20090126
  Transmission Date: 20090719
  Serious: Yes (Disabling, Other)
  Sender: FDA-Public Use
  Company Number: BR-ELI_LILLY_AND_COMPANY-BR200901004463

PATIENT
  Sex: Male

DRUGS (5)
  1. CIALIS [Suspect]
     Dosage: UNK, UNKNOWN
     Route: 065
     Dates: start: 20050101
  2. VIAGRA [Concomitant]
     Dosage: 100 MG, UNKNOWN
     Route: 065
  3. VIAGRA [Concomitant]
     Dosage: 200 MG, UNKNOWN
     Route: 065
  4. VIAGRA [Concomitant]
     Dosage: 150 MG, UNKNOWN
     Route: 065
  5. LEVITRA [Concomitant]
     Dosage: 20 MG, UNKNOWN
     Route: 065

REACTIONS (11)
  - ACCIDENT [None]
  - DISTURBANCE IN SEXUAL AROUSAL [None]
  - EJACULATION FAILURE [None]
  - MUSCLE SPASTICITY [None]
  - NEUROGENIC BLADDER [None]
  - NO THERAPEUTIC RESPONSE [None]
  - PAIN [None]
  - PENILE SIZE REDUCED [None]
  - QUADRIPARESIS [None]
  - QUADRIPLEGIA [None]
  - SPINAL CORD INJURY CERVICAL [None]
